FAERS Safety Report 16124746 (Version 1)
Quarter: 2019Q1

REPORT INFORMATION
  Report Type: Spontaneous
  Country: US (occurrence: US)
  Receive Date: 20190327
  Receipt Date: 20190327
  Transmission Date: 20190418
  Serious: No
  Sender: FDA-Public Use
  Company Number: US-ACTELION-A-NJ2019-187298

PATIENT
  Sex: Female

DRUGS (3)
  1. UPTRAVI [Suspect]
     Active Substance: SELEXIPAG
     Indication: PULMONARY ARTERIAL HYPERTENSION
     Dosage: 200 MG, BID
     Route: 048
     Dates: start: 20190222, end: 20190227
  2. OPSUMIT [Suspect]
     Active Substance: MACITENTAN
     Indication: PULMONARY ARTERIAL HYPERTENSION
     Dosage: 10 MG, QD
     Route: 048
     Dates: start: 20190129
  3. OXYGEN. [Concomitant]
     Active Substance: OXYGEN

REACTIONS (6)
  - Heart rate irregular [Unknown]
  - Blood glucose increased [Unknown]
  - Quality of life decreased [Unknown]
  - Headache [Unknown]
  - Dyspnoea [Unknown]
  - Flushing [Unknown]
